FAERS Safety Report 11462871 (Version 1)
Quarter: 2015Q3

REPORT INFORMATION
  Report Type: Spontaneous
  Country: US (occurrence: US)
  Receive Date: 20150831
  Receipt Date: 20150831
  Transmission Date: 20151125
  Serious: No
  Sender: FDA-Public Use
  Company Number: US-ELI_LILLY_AND_COMPANY-US201102000933

PATIENT
  Age: 59 Year
  Sex: Female

DRUGS (11)
  1. CYMBALTA [Suspect]
     Active Substance: DULOXETINE HYDROCHLORIDE
     Dosage: 30 MG, OTHER
     Dates: end: 20110126
  2. CYMBALTA [Suspect]
     Active Substance: DULOXETINE HYDROCHLORIDE
     Dosage: 30 MG, QOD
     Dates: start: 201010
  3. PANTOPRAZOLE [Concomitant]
     Active Substance: PANTOPRAZOLE SODIUM
  4. CALCIUM W/MINERALS/VITAMIN D NOS [Concomitant]
  5. SUCRALFATE. [Concomitant]
     Active Substance: SUCRALFATE
  6. CYMBALTA [Suspect]
     Active Substance: DULOXETINE HYDROCHLORIDE
     Indication: DEPRESSION
     Dosage: 30 MG, DAILY (1/D)
     Dates: start: 200911
  7. SIMVASTIN [Concomitant]
     Active Substance: SIMVASTATIN
  8. ELAVIL [Concomitant]
     Active Substance: AMITRIPTYLINE HYDROCHLORIDE
     Dates: start: 1990
  9. ESTRADIOL. [Concomitant]
     Active Substance: ESTRADIOL
  10. FISH OIL [Concomitant]
     Active Substance: FISH OIL
  11. CYMBALTA [Suspect]
     Active Substance: DULOXETINE HYDROCHLORIDE
     Dosage: 30 MG, OTHER

REACTIONS (5)
  - Drug withdrawal syndrome [Not Recovered/Not Resolved]
  - Paraesthesia [Not Recovered/Not Resolved]
  - Vision blurred [Not Recovered/Not Resolved]
  - Nausea [Not Recovered/Not Resolved]
  - Salivary hypersecretion [Not Recovered/Not Resolved]
